FAERS Safety Report 9364620 (Version 8)
Quarter: 2014Q1

REPORT INFORMATION
  Report Type: Spontaneous
  Country: US (occurrence: US)
  Receive Date: 20130624
  Receipt Date: 20140124
  Transmission Date: 20141002
  Serious: Yes (Hospitalization, Other)
  Sender: FDA-Public Use
  Company Number: PHEH2005US014214

PATIENT
  Age: 46 Year
  Sex: Male
  Weight: 59 kg

DRUGS (57)
  1. AREDIA [Suspect]
     Indication: PLASMA CELL MYELOMA
     Dosage: 60 MG, QMO
     Route: 042
  2. ZOMETA [Suspect]
     Indication: PLASMA CELL MYELOMA
     Dates: end: 2004
  3. ZOMETA [Suspect]
     Dosage: 4 MG, QMO
     Route: 042
     Dates: end: 20050519
  4. ZOMETA [Suspect]
     Route: 042
  5. SEPTOCAINE [Suspect]
  6. VINCRISTINE [Concomitant]
     Indication: PLASMA CELL MYELOMA
     Dosage: UNK UKN, UNK
     Dates: start: 2003, end: 200401
  7. ADRIAMYCIN [Concomitant]
     Indication: PLASMA CELL MYELOMA
     Dosage: UNK UKN, UNK
     Dates: start: 2003, end: 200401
  8. DEXAMETHASONE [Concomitant]
     Dosage: UNK UKN, UNK
     Dates: start: 2003
  9. THALIDOMIDE [Concomitant]
     Indication: PLASMA CELL MYELOMA
     Dosage: 100 MG,
     Route: 048
     Dates: start: 20040217, end: 20040330
  10. VELCADE [Concomitant]
     Indication: PLASMA CELL MYELOMA
     Dosage: 1.3 MG/M2, UNK
     Route: 042
     Dates: start: 20040330, end: 20040610
  11. MS CONTIN [Concomitant]
  12. MORPHINE [Concomitant]
  13. REMERON [Concomitant]
  14. AMITRIPTYLINE [Concomitant]
  15. METHADONE [Concomitant]
  16. EPOGEN [Concomitant]
  17. MEGACE [Concomitant]
  18. COMPAZINE [Concomitant]
     Dosage: 10 MG, PRN
  19. ZOFRAN [Concomitant]
  20. PREDNISONE [Concomitant]
  21. OXYCONTIN [Concomitant]
  22. TOPROL XL [Concomitant]
  23. VASOTEC [Concomitant]
  24. NITROGLYCERIN [Concomitant]
  25. PROTONIX [Concomitant]
  26. TYLENOL [Concomitant]
  27. FOLIC ACID [Concomitant]
  28. SENOKOT [Concomitant]
     Dosage: UNK UKN, PRN
  29. COLACE [Concomitant]
  30. REGLAN [Concomitant]
     Dosage: 5 MG, UNK
  31. ATIVAN [Concomitant]
  32. MELPHALAN [Concomitant]
  33. COUMADIN ^BOOTS^ [Concomitant]
  34. LOPRESSOR [Concomitant]
  35. PLAVIX [Concomitant]
  36. PAXIL [Concomitant]
  37. ASPIRIN ^BAYER^ [Concomitant]
  38. CITANEST [Concomitant]
  39. LIDOCAINE HYDROCHLORIDE [Concomitant]
  40. TRIMOX [Concomitant]
     Dosage: 2 DF, UNK
  41. DAILY-VITE [Concomitant]
     Dosage: 1 DF, QD
     Route: 048
  42. OMEPRAZOLE [Concomitant]
     Dosage: 20 MG, QD
     Route: 048
  43. HEPARIN [Concomitant]
     Dosage: 50000 U, BID
  44. INDOMETACIN [Concomitant]
     Dosage: 50 MG, TID
  45. DILANTIN [Concomitant]
     Dosage: 3000 MG, UNK
  46. XANAX [Concomitant]
     Dosage: 1 MG, TID
  47. FERROUS SULPHATE [Concomitant]
     Dosage: 325 MG, BID
  48. LORAZEPAM [Concomitant]
  49. PHENYTOIN [Concomitant]
     Dosage: 300 MG, UNK
  50. LOPERAMIDE [Concomitant]
  51. ACETAMINOPHEN [Concomitant]
     Dosage: 650 MG, UNK
  52. VALIUM [Concomitant]
  53. DILAUDID [Concomitant]
  54. TAMOXIFEN [Concomitant]
     Dosage: 10 MG, UNK
  55. BISACODYL [Concomitant]
     Dosage: 5 MG, UNK
  56. ZYVOX [Concomitant]
     Dosage: 600 MG, BID
  57. PROMETHAZINE HYDROCHLORIDE [Concomitant]
     Dosage: 25 MG, UNK
     Route: 065

REACTIONS (161)
  - Hyperthyroidism [Unknown]
  - Gastrointestinal haemorrhage [Unknown]
  - Gynaecomastia [Unknown]
  - Arteriovenous fistula thrombosis [Unknown]
  - Vascular pseudoaneurysm [Unknown]
  - Jugular vein thrombosis [Unknown]
  - Superior vena cava syndrome [Unknown]
  - Spinal osteoarthritis [Unknown]
  - Cervical spinal stenosis [Unknown]
  - Osteoarthritis [Unknown]
  - Cholelithiasis [Unknown]
  - Respiratory distress [Unknown]
  - Pulmonary congestion [Unknown]
  - Lung infiltration [Unknown]
  - Hyponatraemia [Unknown]
  - Bronchitis [Unknown]
  - Aortic valve incompetence [Unknown]
  - Splenomegaly [Unknown]
  - Encephalopathy [Recovered/Resolved]
  - Sinus tachycardia [Unknown]
  - Synovial rupture [Unknown]
  - Ileus [Unknown]
  - Neuropathy peripheral [Unknown]
  - Dizziness [Unknown]
  - Hypoxia [Recovering/Resolving]
  - Sedation [Unknown]
  - Gastrooesophageal reflux disease [Unknown]
  - Asthenia [Unknown]
  - Dyspnoea [Unknown]
  - Back pain [Unknown]
  - Hypophosphataemia [Unknown]
  - Rash macular [Unknown]
  - Dyspnoea paroxysmal nocturnal [Unknown]
  - Cataract [Unknown]
  - Erectile dysfunction [Unknown]
  - Prostatomegaly [Unknown]
  - Blood pressure increased [Recovering/Resolving]
  - Hiatus hernia [Unknown]
  - Arteriosclerosis coronary artery [Unknown]
  - Pancreatic atrophy [Unknown]
  - Enterocolitis [Unknown]
  - Lacunar infarction [Unknown]
  - Gingival pain [Unknown]
  - Papule [Unknown]
  - Pain in extremity [Unknown]
  - Anaemia macrocytic [Unknown]
  - Osteodystrophy [Unknown]
  - Gait disturbance [Unknown]
  - Lymphadenopathy [Unknown]
  - Hypercalcaemia [Unknown]
  - Lymphoma [Unknown]
  - Leukaemia [Unknown]
  - Second primary malignancy [Unknown]
  - Essential hypertension [Unknown]
  - Dysphagia [Unknown]
  - Intervertebral disc protrusion [Unknown]
  - Restrictive pulmonary disease [Unknown]
  - Leukopenia [Unknown]
  - Malnutrition [Unknown]
  - Fall [Unknown]
  - Septic shock [Unknown]
  - Hypotension [Unknown]
  - Tenosynovitis [Unknown]
  - Encephalomalacia [Unknown]
  - Vision blurred [Unknown]
  - Amnesia [Unknown]
  - Haematuria [Unknown]
  - Myoglobinuria [Unknown]
  - Anxiety [Unknown]
  - Endocrine disorder [Unknown]
  - Intestinal obstruction [Unknown]
  - Arthropathy [Unknown]
  - Embolism venous [Unknown]
  - Abscess [Unknown]
  - Muscle atrophy [Unknown]
  - Pulmonary embolism [Unknown]
  - Suicidal ideation [Unknown]
  - Hyperlipidaemia [Unknown]
  - Scoliosis [Unknown]
  - Umbilical hernia [Unknown]
  - Small intestinal obstruction [Unknown]
  - Drug dependence [Unknown]
  - Spinal disorder [Unknown]
  - Neoplasm malignant [Unknown]
  - Steal syndrome [Unknown]
  - Arteriovenous fistula [Unknown]
  - Left ventricular dysfunction [Unknown]
  - Aortic valve sclerosis [Unknown]
  - Mitral valve incompetence [Unknown]
  - Tricuspid valve incompetence [Unknown]
  - Pulmonary hypertension [Unknown]
  - Dehydration [Unknown]
  - Tooth loss [Unknown]
  - Staphylococcal sepsis [Unknown]
  - Pleural effusion [Unknown]
  - Gastritis erosive [Unknown]
  - Osteitis [Unknown]
  - Renal cyst [Unknown]
  - Facet joint syndrome [Unknown]
  - Wound infection [Unknown]
  - Pleural fibrosis [Unknown]
  - Erythema [Unknown]
  - Renal failure acute [Unknown]
  - Epilepsy [Unknown]
  - Oedema peripheral [Unknown]
  - Conjunctival haemorrhage [Unknown]
  - Pneumonia [Recovered/Resolved]
  - Ear infection [Recovered/Resolved]
  - Progressive supranuclear palsy [Recovering/Resolving]
  - Sepsis [Unknown]
  - Device related infection [Recovering/Resolving]
  - Urinary tract infection [Recovering/Resolving]
  - Device related sepsis [Unknown]
  - Clostridium difficile colitis [Recovering/Resolving]
  - Aeromona infection [Recovering/Resolving]
  - Endocarditis [Unknown]
  - Staphylococcal bacteraemia [Recovering/Resolving]
  - Mitral valve disease [Unknown]
  - Chills [Unknown]
  - Pyrexia [Unknown]
  - Cellulitis [Unknown]
  - Wound decomposition [Unknown]
  - Osteoporosis [Unknown]
  - Osteonecrosis of jaw [Recovered/Resolved]
  - Toothache [Unknown]
  - Tooth discolouration [Unknown]
  - Dental plaque [Unknown]
  - Bone disorder [Recovered/Resolved]
  - Hyperkalaemia [Recovering/Resolving]
  - Pancytopenia [Not Recovered/Not Resolved]
  - Thrombocytopenia [Not Recovered/Not Resolved]
  - Anaemia [Not Recovered/Not Resolved]
  - Compression fracture [Unknown]
  - Osteopenia [Unknown]
  - Renal failure chronic [Unknown]
  - Nephropathy [Unknown]
  - Febrile neutropenia [Unknown]
  - Atelectasis [Unknown]
  - Plasma cell myeloma [Unknown]
  - Osteolysis [Unknown]
  - Mucosal inflammation [Unknown]
  - Bone lesion [Unknown]
  - Impaired gastric emptying [Not Recovered/Not Resolved]
  - Azotaemia [Unknown]
  - Sexual dysfunction [Unknown]
  - Intervertebral disc degeneration [Unknown]
  - Vertebral foraminal stenosis [Unknown]
  - Kyphosis [Unknown]
  - Immunosuppression [Unknown]
  - Peritonitis [Unknown]
  - Hypertension [Unknown]
  - Arteriovenous fistula occlusion [Unknown]
  - Gouty arthritis [Unknown]
  - Cardiac failure congestive [Unknown]
  - Fluid overload [Unknown]
  - Oedema [Unknown]
  - Deep vein thrombosis [Unknown]
  - Mental status changes [Unknown]
  - Convulsion [Unknown]
  - Hepatitis C [Unknown]
  - Cholecystitis [Unknown]
